FAERS Safety Report 9049085 (Version 1)
Quarter: 2013Q1

REPORT INFORMATION
  Report Type: Spontaneous
  Country: US (occurrence: None)
  Receive Date: 20130129
  Receipt Date: 20130129
  Transmission Date: 20140127
  Serious: No
  Sender: FDA-Public Use
  Company Number: None

PATIENT
  Sex: Male

DRUGS (2)
  1. BUPROPION HYDROCHLORIDE [Suspect]
     Indication: DEPRESSION
     Dosage: 150 MG  DAILY?LAST USED  12/2011
     Dates: end: 201112
  2. BUPROPION HYDROCHLORIDE [Suspect]
     Indication: ANXIETY
     Dosage: 150 MG  DAILY?LAST USED  12/2011
     Dates: end: 201112

REACTIONS (2)
  - Product substitution issue [None]
  - Drug effect decreased [None]
